FAERS Safety Report 8592612-9 (Version None)
Quarter: 2012Q3

REPORT INFORMATION
  Report Type: 
  Country: None (occurrence: None)
  Receive Date: 20120814
  Receipt Date: 20120806
  Transmission Date: 20120928
  Serious: Yes (Hospitalization)
  Sender: FDA-Public Use
  Company Number: US-ACTELION-A-US2011-58483

PATIENT
  Age: 43 Year
  Sex: Female

DRUGS (5)
  1. TRACLEER [Suspect]
     Dosage: 62.5 MG, BID
     Route: 048
     Dates: start: 20080619, end: 20080718
  2. TRACLEER [Suspect]
     Dosage: UNK
     Route: 048
  3. COUMADIN [Concomitant]
  4. TRACLEER [Suspect]
     Indication: PULMONARY ARTERIAL HYPERTENSION
     Dosage: 125 MG, BID
     Route: 048
     Dates: start: 20080616
  5. REVATIO [Concomitant]

REACTIONS (7)
  - GASTRITIS [None]
  - ANGIOPLASTY [None]
  - NAUSEA [None]
  - ABDOMINAL PAIN [None]
  - VOMITING [None]
  - MESENTERIC ARTERY STENOSIS [None]
  - RENAL FAILURE [None]
